FAERS Safety Report 18303389 (Version 1)
Quarter: 2020Q3

REPORT INFORMATION
  Report Type: Spontaneous
  Country: US (occurrence: US)
  Receive Date: 20200924
  Receipt Date: 20200924
  Transmission Date: 20201103
  Serious: No
  Sender: FDA-Public Use
  Company Number: US-009507513-2009USA008133

PATIENT
  Age: 72 Year
  Sex: Male
  Weight: 75.8 kg

DRUGS (1)
  1. KEYTRUDA [Suspect]
     Active Substance: PEMBROLIZUMAB
     Indication: COLON CANCER METASTATIC
     Dosage: 200 MILLIGRAM, Q 21 DAYS
     Route: 042
     Dates: start: 20200904, end: 20200904

REACTIONS (1)
  - Rash [Unknown]

NARRATIVE: CASE EVENT DATE: 202009
